FAERS Safety Report 25987021 (Version 1)
Quarter: 2025Q4

REPORT INFORMATION
  Report Type: Report from Study
  Country: BR (occurrence: BR)
  Receive Date: 20251103
  Receipt Date: 20251103
  Transmission Date: 20260117
  Serious: Yes (Hospitalization)
  Sender: JOHNSON AND JOHNSON
  Company Number: BR-JNJFOC-20251032945

PATIENT
  Age: 74 Year
  Sex: Male
  Weight: 79 kg

DRUGS (1)
  1. TALVEY [Suspect]
     Active Substance: TALQUETAMAB-TGVS
     Indication: Plasma cell myeloma
     Dosage: ONCE A MONTH
     Route: 058
     Dates: start: 20251020

REACTIONS (2)
  - General physical health deterioration [Unknown]
  - Inappropriate schedule of product administration [Unknown]
